FAERS Safety Report 9705846 (Version 2)
Quarter: 2014Q1

REPORT INFORMATION
  Report Type: Spontaneous
  Country: US (occurrence: US)
  Receive Date: 20131122
  Receipt Date: 20140103
  Transmission Date: 20141002
  Serious: Yes (Hospitalization)
  Sender: FDA-Public Use
  Company Number: US-B.I. PHARMACEUTICALS,INC./RIDGEFIELD-2013-BI-38160BP

PATIENT
  Age: 65 Year
  Sex: Female
  Weight: 86.18 kg

DRUGS (8)
  1. SPIRIVA [Suspect]
     Indication: ASTHMA
     Dosage: 18 MCG
     Route: 055
     Dates: start: 2004
  2. ALBUTEROL [Concomitant]
     Indication: ASTHMA
     Dosage: FORMULATION: INHALATION SPRAY
     Route: 055
  3. ALBUTEROL [Concomitant]
     Dosage: FORMULATION: INHALATION SPRAY
     Route: 055
  4. FORADIL [Concomitant]
     Indication: ASTHMA
     Dosage: 24 MCG
     Route: 055
  5. PULMICORT [Concomitant]
     Indication: ASTHMA
     Dosage: 0.5 MG
     Route: 055
  6. SODIUM CHLORIDE [Concomitant]
     Dosage: INHALATION SPRAY
     Route: 055
  7. PROVENTIL [Concomitant]
     Indication: ASTHMA
     Dosage: INHALATION SPRAY
     Route: 055
  8. SINGULAIR [Concomitant]
     Indication: ASTHMA
     Dosage: 10 MG
     Route: 048

REACTIONS (4)
  - Asthma [Recovered/Resolved]
  - Intervertebral disc degeneration [Recovered/Resolved]
  - Spinal column stenosis [Not Recovered/Not Resolved]
  - Off label use [Not Recovered/Not Resolved]
